FAERS Safety Report 9349550 (Version 1)
Quarter: 2013Q2

REPORT INFORMATION
  Report Type: Spontaneous
  Country: DE (occurrence: None)
  Receive Date: 20130611
  Receipt Date: 20130611
  Transmission Date: 20140414
  Serious: No
  Sender: FDA-Public Use
  Company Number: GER/GER/13/0029924

PATIENT
  Age: 37 Year
  Sex: Female

DRUGS (3)
  1. OMEPRAZOLE (OMEPRAZOLE) [Suspect]
     Indication: GASTROOESOPHAGEAL REFLUX DISEASE
     Route: 048
     Dates: start: 20110421, end: 20110519
  2. FOLIO FORTE (FOLIO) [Concomitant]
  3. TEPILTA (MUCAINE) [Concomitant]

REACTIONS (2)
  - Maternal exposure during pregnancy [None]
  - Caesarean section [None]
